FAERS Safety Report 6620637-9 (Version None)
Quarter: 2010Q1

REPORT INFORMATION
  Report Type: 
  Country: None (occurrence: None)
  Receive Date: 20100304
  Receipt Date: 20100224
  Transmission Date: 20100710
  Serious: Yes (Death)
  Sender: FDA-Public Use
  Company Number: 1000012205

PATIENT
  Age: 90 Year
  Sex: Female

DRUGS (8)
  1. DILTIAZEM [Suspect]
  2. GLYBURIDE [Suspect]
  3. TENORMIN [Suspect]
  4. WARFARIN SODIUM [Suspect]
  5. FUROSEMIDE [Suspect]
  6. POTASSIUM CHLORIDE [Suspect]
  7. METOLAZONE [Suspect]
  8. HYDRALAZINE HCL [Suspect]

REACTIONS (2)
  - CARDIAC ARREST [None]
  - RESPIRATORY ARREST [None]
